FAERS Safety Report 6240416-4 (Version None)
Quarter: 2009Q2

REPORT INFORMATION
  Report Type: 
  Country: None (occurrence: None)
  Receive Date: 20090618
  Receipt Date: 20090618
  Transmission Date: 20091009
  Serious: Yes (Hospitalization)
  Sender: FDA-Public Use
  Company Number: None

PATIENT
  Age: 79 Year
  Sex: Male

DRUGS (1)
  1. REVLIMID [Suspect]

REACTIONS (6)
  - DRUG INTOLERANCE [None]
  - INFECTION IN AN IMMUNOCOMPROMISED HOST [None]
  - LETHARGY [None]
  - MYELOMA RECURRENCE [None]
  - PANCYTOPENIA [None]
  - PNEUMONIA STAPHYLOCOCCAL [None]
